FAERS Safety Report 20948883 (Version 1)
Quarter: 2022Q2

REPORT INFORMATION
  Report Type: Report from Study
  Country: US (occurrence: US)
  Receive Date: 20220612
  Receipt Date: 20220612
  Transmission Date: 20220721
  Serious: Yes (Hospitalization, Other)
  Sender: FDA-Public Use
  Company Number: US-BRISTOL-MYERS SQUIBB COMPANY-2022-052565

PATIENT
  Age: 59 Year
  Sex: Female
  Weight: 3.18 kg

DRUGS (10)
  1. ORENCIA [Suspect]
     Active Substance: ABATACEPT
     Indication: Rheumatoid arthritis
     Route: 058
  2. GABAPENTIN [Concomitant]
     Active Substance: GABAPENTIN
  3. PILOCARPINE [Concomitant]
     Active Substance: PILOCARPINE
  4. AMITRIPTYLINE [Concomitant]
     Active Substance: AMITRIPTYLINE
  5. BUPROPION [Concomitant]
     Active Substance: BUPROPION
  6. DULOXETINE [Concomitant]
     Active Substance: DULOXETINE
  7. LOVASTATIN [Concomitant]
     Active Substance: LOVASTATIN
     Dosage: LAST WEEK STARTED
  8. MELATONIN [Concomitant]
     Active Substance: MELATONIN
     Dosage: TO HELP SLEEP AT NIGHT
  9. FOLIC ACID [Concomitant]
     Active Substance: FOLIC ACID
  10. TIZANIDINE [Concomitant]
     Active Substance: TIZANIDINE

REACTIONS (6)
  - Rib fracture [Unknown]
  - Lung disorder [Unknown]
  - Fall [Unknown]
  - Spinal cord disorder [Unknown]
  - Arthropathy [Unknown]
  - Device leakage [Unknown]

NARRATIVE: CASE EVENT DATE: 20200301
